FAERS Safety Report 7456209-6 (Version None)
Quarter: 2011Q2

REPORT INFORMATION
  Report Type: 
  Country: None (occurrence: None)
  Receive Date: 20110503
  Receipt Date: 20110426
  Transmission Date: 20111010
  Serious: Yes (Other)
  Sender: FDA-Public Use
  Company Number: BR-SANOFI-AVENTIS-2010SA071572

PATIENT
  Sex: Female
  Weight: 80 kg

DRUGS (3)
  1. LOSARTAN [Concomitant]
     Indication: HYPERTENSION
     Route: 048
     Dates: start: 20100101
  2. LANTUS [Suspect]
     Indication: TYPE 1 DIABETES MELLITUS
     Route: 058
     Dates: start: 20060101
  3. PURAN T4 [Concomitant]
     Indication: THYROID DISORDER
     Route: 048

REACTIONS (14)
  - HYPERTENSION [None]
  - DIABETIC NEUROPATHY [None]
  - HYPERGLYCAEMIA [None]
  - BLINDNESS UNILATERAL [None]
  - EYE HAEMORRHAGE [None]
  - CATARACT [None]
  - DIABETIC RETINOPATHY [None]
  - GAIT DISTURBANCE [None]
  - HYPOAESTHESIA [None]
  - GLAUCOMA [None]
  - PAIN IN EXTREMITY [None]
  - BLOOD PRESSURE SYSTOLIC INCREASED [None]
  - RETINAL DETACHMENT [None]
  - ADVERSE REACTION [None]
